FAERS Safety Report 20645138 (Version 1)
Quarter: 2022Q1

REPORT INFORMATION
  Report Type: Other
  Country: ES (occurrence: None)
  Receive Date: 20220328
  Receipt Date: 20220328
  Transmission Date: 20220423
  Serious: No
  Sender: FDA-Public Use
  Company Number: ES-ROCHE-3057481

PATIENT
  Age: 48 Year
  Sex: Female
  Weight: 59 kg

DRUGS (3)
  1. OCRELIZUMAB [Suspect]
     Active Substance: OCRELIZUMAB
     Indication: Primary progressive multiple sclerosis
     Dosage: TOTAL VOLUME PRIOR AE IS 500 ML
     Route: 042
     Dates: start: 20200910
  2. VORTIOXETINA [Concomitant]
     Route: 048
     Dates: start: 20210706
  3. CANNABIDIOL;DRONABINOL [Concomitant]
     Dosage: DRUG DOSE FIRST ADMINISTERED IS 3 ;ONGOING: YES
     Route: 048
     Dates: start: 20210311

REACTIONS (1)
  - COVID-19 [Recovered/Resolved]

NARRATIVE: CASE EVENT DATE: 20220104
